FAERS Safety Report 8386665-0 (Version None)
Quarter: 2012Q2

REPORT INFORMATION
  Report Type: 
  Country: None (occurrence: None)
  Receive Date: 20120525
  Receipt Date: 20120522
  Transmission Date: 20120825
  Serious: No
  Sender: FDA-Public Use
  Company Number: US-PFIZER INC-2012124064

PATIENT
  Sex: Male
  Weight: 108.84 kg

DRUGS (2)
  1. DUTASTERIDE/TAMSULOSIN HCL [Concomitant]
     Indication: PROSTATOMEGALY
     Dosage: UNK
  2. TOVIAZ [Suspect]
     Indication: HYPERTONIC BLADDER
     Dosage: 8 MG, 1X/DAY
     Route: 048
     Dates: start: 20120512

REACTIONS (1)
  - DRUG INEFFECTIVE [None]
